FAERS Safety Report 8610485-2 (Version None)
Quarter: 2012Q3

REPORT INFORMATION
  Report Type: 
  Country: None (occurrence: None)
  Receive Date: 20120822
  Receipt Date: 20120817
  Transmission Date: 20120928
  Serious: No
  Sender: FDA-Public Use
  Company Number: US-PFIZER INC-2012203282

PATIENT
  Age: 46 Year
  Sex: Female
  Weight: 75.737 kg

DRUGS (2)
  1. FLECTOR [Suspect]
     Indication: BURSITIS
     Dosage: UNK, 2X/DAY
     Route: 062
     Dates: start: 20120727, end: 20120101
  2. CORTISONE ACETATE [Suspect]
     Dosage: UNK

REACTIONS (3)
  - SKIN EROSION [None]
  - DRUG INEFFECTIVE [None]
  - PAIN [None]
